FAERS Safety Report 24166772 (Version 2)
Quarter: 2024Q3

REPORT INFORMATION
  Report Type: Spontaneous
  Country: US (occurrence: US)
  Receive Date: 20240802
  Receipt Date: 20240916
  Transmission Date: 20241016
  Serious: No
  Sender: GILEAD
  Company Number: US-GILEAD-2024-0682287

PATIENT
  Age: 77 Year
  Sex: Male

DRUGS (1)
  1. BIKTARVY [Suspect]
     Active Substance: BICTEGRAVIR SODIUM\EMTRICITABINE\TENOFOVIR ALAFENAMIDE FUMARATE
     Indication: HIV infection
     Dosage: 50/200/25 MG
     Route: 065

REACTIONS (5)
  - Product physical issue [Unknown]
  - Product blister packaging issue [Unknown]
  - Product packaging difficult to open [Unknown]
  - Incorrect dose administered [Unknown]
  - Product label issue [Unknown]
